FAERS Safety Report 19893733 (Version 2)
Quarter: 2021Q4

REPORT INFORMATION
  Report Type: Spontaneous
  Country: BR (occurrence: None)
  Receive Date: 20210928
  Receipt Date: 20211228
  Transmission Date: 20220303
  Serious: Yes (Hospitalization, Other)
  Sender: FDA-Public Use
  Company Number: 2021A736885

PATIENT
  Sex: Male

DRUGS (3)
  1. ACALABRUTINIB [Suspect]
     Active Substance: ACALABRUTINIB
     Indication: Chronic lymphocytic leukaemia
     Route: 048
     Dates: start: 2021
  2. GOSERELIN ACETATE [Suspect]
     Active Substance: GOSERELIN ACETATE
     Indication: Prostate cancer
     Route: 058
  3. OBINUTUZUMAB [Concomitant]
     Active Substance: OBINUTUZUMAB
     Indication: Chronic lymphocytic leukaemia refractory
     Dates: start: 2021

REACTIONS (9)
  - Malignant neoplasm progression [Not Recovered/Not Resolved]
  - COVID-19 [Recovered/Resolved]
  - Urethral pain [Unknown]
  - Urinary bladder haemorrhage [Recovering/Resolving]
  - Metastases to spine [Not Recovered/Not Resolved]
  - Haematuria [Recovering/Resolving]
  - Dysuria [Unknown]
  - Micturition urgency [Unknown]
  - Epistaxis [Recovered/Resolved]

NARRATIVE: CASE EVENT DATE: 20210101
